FAERS Safety Report 10244429 (Version 1)
Quarter: 2014Q2

REPORT INFORMATION
  Report Type: Spontaneous
  Country: US (occurrence: None)
  Receive Date: 20140616
  Receipt Date: 20140616
  Transmission Date: 20141212
  Serious: Yes (Hospitalization)
  Sender: FDA-Public Use
  Company Number: None

PATIENT
  Age: 58 Year
  Sex: Female
  Weight: 61.6 kg

DRUGS (10)
  1. RIBAVIRIN [Suspect]
     Indication: HEPATITIS C
     Route: 048
     Dates: start: 20140228
  2. SOFOSBUVIR [Suspect]
     Indication: HEPATITIS C
     Route: 048
     Dates: start: 20140228
  3. FLONASE [Concomitant]
  4. LASIX [Concomitant]
  5. ALDACTONE [Concomitant]
  6. ACIDOPHILUS [Concomitant]
  7. CIPROFLOXACIN [Concomitant]
  8. ZOFRAN [Concomitant]
  9. CEFOTAXIME [Concomitant]
  10. RIFAXIMIN [Concomitant]

REACTIONS (3)
  - Peritonitis bacterial [None]
  - Treatment noncompliance [None]
  - Hepatic encephalopathy [None]
